FAERS Safety Report 5507197-0 (Version None)
Quarter: 2007Q4

REPORT INFORMATION
  Report Type: 
  Country: None (occurrence: None)
  Receive Date: 20071102
  Receipt Date: 20071024
  Transmission Date: 20080405
  Serious: Yes (Other)
  Sender: FDA-Public Use
  Company Number: 2007SP021646

PATIENT
  Sex: Male

DRUGS (1)
  1. INTRON A [Suspect]
     Indication: HEPATITIS C

REACTIONS (8)
  - HEPATIC FAILURE [None]
  - MALAISE [None]
  - MEMORY IMPAIRMENT [None]
  - OEDEMA PERIPHERAL [None]
  - PAIN [None]
  - TREATMENT FAILURE [None]
  - VOMITING [None]
  - WHITE BLOOD CELL COUNT DECREASED [None]
